FAERS Safety Report 6681078-1 (Version None)
Quarter: 2010Q2

REPORT INFORMATION
  Report Type: 
  Country: None (occurrence: None)
  Receive Date: 20100414
  Receipt Date: 20100402
  Transmission Date: 20101027
  Serious: Yes (Other)
  Sender: FDA-Public Use
  Company Number: US-WYE-H14446910

PATIENT
  Sex: Female

DRUGS (4)
  1. IBUPROFEN (ADVIL) [Suspect]
     Indication: DRUG USE FOR UNKNOWN INDICATION
     Dosage: UNKNOWN
     Route: 048
     Dates: end: 20100101
  2. NEXIUM [Concomitant]
     Indication: DRUG USE FOR UNKNOWN INDICATION
     Dosage: UNKNOWN
     Route: 048
  3. LISINOPRIL AND HYDROCHLOROTHIAZIDE [Concomitant]
     Indication: HYPERTENSION
     Dosage: 20/25 MG DAILY
     Route: 065
     Dates: start: 20100101, end: 20100402
  4. CELEBREX [Concomitant]
     Indication: ARTHRALGIA
     Route: 065
     Dates: start: 20100201, end: 20100326

REACTIONS (1)
  - DRUG ABUSE [None]
